FAERS Safety Report 6033079-4 (Version None)
Quarter: 2009Q1

REPORT INFORMATION
  Report Type: 
  Country: None (occurrence: None)
  Receive Date: 20090107
  Receipt Date: 20081222
  Transmission Date: 20090719
  Serious: Yes (Other)
  Sender: FDA-Public Use
  Company Number: 2008S1022703

PATIENT
  Age: 12 Year
  Sex: Female

DRUGS (15)
  1. IFOSFAMIDE [Suspect]
     Indication: EWING'S SARCOMA
  2. CYCLOPHOSPHAMIDE [Suspect]
     Indication: EWING'S SARCOMA
  3. CYCLOPHOSPHAMIDE [Suspect]
     Indication: NEOPLASM PROGRESSION
  4. ETOPOSIDE [Suspect]
     Indication: EWING'S SARCOMA
  5. ETOPOSIDE [Suspect]
     Indication: NEOPLASM PROGRESSION
  6. DOXORUBICIN HCL [Suspect]
     Indication: EWING'S SARCOMA
  7. VINCRISTINE [Suspect]
     Indication: EWING'S SARCOMA
  8. TOPOTECAN [Suspect]
     Indication: NEOPLASM PROGRESSION
  9. VINBLASTINE SULFATE [Suspect]
     Indication: NEOPLASM PROGRESSION
  10. GEFITINIB [Suspect]
     Indication: NEOPLASM PROGRESSION
  11. IRINOTECAN HCL [Suspect]
     Indication: NEOPLASM PROGRESSION
  12. MELPHALAN [Suspect]
  13. FLUDARABINE PHOSPHATE [Suspect]
  14. THIOTEPA [Suspect]
  15. CARBOPLATIN [Suspect]

REACTIONS (8)
  - AREFLEXIA [None]
  - HYPOAESTHESIA [None]
  - LEUKOENCEPHALOPATHY [None]
  - LUNG NEOPLASM [None]
  - MYELOPATHY [None]
  - NEOPLASM PROGRESSION [None]
  - NEUROPATHY PERIPHERAL [None]
  - STEM CELL TRANSPLANT [None]
